FAERS Safety Report 9451104 (Version 1)
Quarter: 2013Q3

REPORT INFORMATION
  Report Type: Report from Study
  Country: US (occurrence: US)
  Receive Date: 20130809
  Receipt Date: 20130809
  Transmission Date: 20140515
  Serious: Yes (Hospitalization, Other)
  Sender: FDA-Public Use
  Company Number: US-ABBOTT-13P-163-1128531-00

PATIENT
  Sex: Female
  Weight: 85.35 kg

DRUGS (3)
  1. HUMIRA [Suspect]
     Indication: PSORIASIS
     Route: 058
     Dates: start: 2009, end: 2010
  2. HUMIRA [Suspect]
     Indication: PSORIATIC ARTHROPATHY
     Route: 058
     Dates: start: 201302, end: 201306
  3. HUMIRA [Suspect]
     Indication: RHEUMATOID ARTHRITIS
     Route: 058
     Dates: start: 20130728

REACTIONS (8)
  - Suicidal ideation [Unknown]
  - Depression [Unknown]
  - Anxiety [Unknown]
  - Abscess [Recovering/Resolving]
  - Staphylococcal infection [Recovered/Resolved]
  - Dermal cyst [Recovering/Resolving]
  - Acne [Recovering/Resolving]
  - Gastrointestinal disorder [Not Recovered/Not Resolved]
